FAERS Safety Report 9800820 (Version 3)
Quarter: 2014Q1

REPORT INFORMATION
  Report Type: Spontaneous
  Country: US (occurrence: US)
  Receive Date: 20140107
  Receipt Date: 20140205
  Transmission Date: 20141002
  Serious: No
  Sender: FDA-Public Use
  Company Number: US-009507513-1401USA001632

PATIENT
  Sex: Female
  Weight: 53.52 kg

DRUGS (2)
  1. IMPLANON [Suspect]
     Dosage: UNK
     Route: 059
     Dates: start: 201212
  2. NEXPLANON [Suspect]
     Dosage: UNK
     Route: 059
     Dates: start: 201212

REACTIONS (2)
  - Device breakage [Unknown]
  - Product quality issue [Unknown]
